FAERS Safety Report 4319235-1 (Version None)
Quarter: 2004Q1

REPORT INFORMATION
  Report Type: 
  Country: None (occurrence: None)
  Receive Date: 20040316
  Receipt Date: 20040308
  Transmission Date: 20041129
  Serious: Yes (Death)
  Sender: FDA-Public Use
  Company Number: 2004SE01234

PATIENT

DRUGS (1)
  1. MARCAINE [Suspect]
     Dosage: 50 MG ONCE TPL
     Route: 064
     Dates: start: 20030901

REACTIONS (9)
  - ACCIDENTAL EXPOSURE [None]
  - BRADYCARDIA FOETAL [None]
  - CAESAREAN SECTION [None]
  - COMPLICATIONS OF MATERNAL EXPOSURE TO THERAPEUTIC DRUGS [None]
  - DEATH NEONATAL [None]
  - DRUG INEFFECTIVE [None]
  - MATERNAL DRUGS AFFECTING FOETUS [None]
  - MEDICATION ERROR [None]
  - NEONATAL HYPOXIA [None]
